FAERS Safety Report 9531805 (Version 1)
Quarter: 2013Q3

REPORT INFORMATION
  Report Type: Spontaneous
  Country: US (occurrence: US)
  Receive Date: 20130918
  Receipt Date: 20130918
  Transmission Date: 20140515
  Serious: No
  Sender: FDA-Public Use
  Company Number: US-PFIZER INC-2013266817

PATIENT
  Age: 59 Year
  Sex: Female

DRUGS (9)
  1. XELJANZ [Suspect]
     Indication: RHEUMATOID ARTHRITIS
     Dosage: 5 MG, 2X/DAY
     Route: 048
     Dates: start: 20130812
  2. LASIX [Concomitant]
     Dosage: 20 MG, UNK
  3. METHOTREXATE [Concomitant]
     Dosage: 2.5 MG, UNK
  4. VOLTAREN [Concomitant]
     Dosage: UNK
  5. CARVEDILOL [Concomitant]
     Dosage: 6.25 MG, UNK
  6. BENAZEPRIL HYDROCHLORIDE [Concomitant]
     Dosage: 5 MG, UNK
  7. FOLIC ACID [Concomitant]
     Dosage: 1 MG, UNK
  8. TYLENOL [Concomitant]
     Dosage: 325 MG, UNK
  9. CLARITIN [Concomitant]
     Dosage: 10 MG, UNK

REACTIONS (2)
  - Nasopharyngitis [Unknown]
  - Pyrexia [Unknown]
